FAERS Safety Report 5012505-3 (Version None)
Quarter: 2006Q2

REPORT INFORMATION
  Report Type: 
  Country: None (occurrence: None)
  Receive Date: 20060411
  Receipt Date: 20060126
  Transmission Date: 20061013
  Serious: No
  Sender: FDA-Public Use
  Company Number: 2006S1000022

PATIENT
  Age: 63 Year
  Sex: Female
  Weight: 85.5 kg

DRUGS (11)
  1. CUBICIN [Suspect]
     Indication: DEVICE RELATED INFECTION
     Dosage: 500 MG;Q24H;IV
     Route: 042
     Dates: start: 20060124, end: 20060125
  2. CUBICIN [Suspect]
     Indication: STREPTOCOCCAL INFECTION
     Dosage: 500 MG;Q24H;IV
     Route: 042
     Dates: start: 20060124, end: 20060125
  3. VANCOMYCIN [Concomitant]
  4. FUROSEMIDE [Concomitant]
  5. METOPROLOL TARTRATE [Concomitant]
  6. LEVOTHYROXINE SODIUM [Concomitant]
  7. INSULIN [Concomitant]
  8. METFORMIN [Concomitant]
  9. AMITRIPTYLINE HCL [Concomitant]
  10. COMBIVENT [Concomitant]
  11. VICODIN [Concomitant]

REACTIONS (3)
  - CHEST DISCOMFORT [None]
  - CHILLS [None]
  - DYSPNOEA [None]
